FAERS Safety Report 21692286 (Version 2)
Quarter: 2022Q4

REPORT INFORMATION
  Report Type: Spontaneous
  Country: US (occurrence: US)
  Receive Date: 20221207
  Receipt Date: 20221221
  Transmission Date: 20230113
  Serious: Yes (Other)
  Sender: FDA-Public Use
  Company Number: US-BIOGEN-2018BI00667788

PATIENT
  Sex: Female
  Weight: 117 kg

DRUGS (14)
  1. TYSABRI [Suspect]
     Active Substance: NATALIZUMAB
     Indication: Multiple sclerosis
     Dosage: INFUSED OVER 1 HOUR
     Route: 050
     Dates: start: 20180928, end: 20180928
  2. TYSABRI [Suspect]
     Active Substance: NATALIZUMAB
     Dosage: INFUSED OVER 1 HOUR
     Route: 050
     Dates: start: 20191011, end: 20210309
  3. LIORESAL [Concomitant]
     Active Substance: BACLOFEN
     Indication: Product used for unknown indication
     Dosage: DISP - 120 TABLET, RFL -11
     Route: 050
  4. CAL CARB [Concomitant]
     Indication: Product used for unknown indication
     Dosage: EXCEDRIN BACK AND BODY ORAL
     Route: 050
  5. CAL CARB [Concomitant]
     Dosage: EXCEDRIN BACK + BODY ORAL
     Route: 050
  6. CAL CARB [Concomitant]
     Dosage: EXCEDRIN BACK + BODY ORAL
     Route: 050
  7. CHOLECALCIFEROL [Concomitant]
     Active Substance: CHOLECALCIFEROL
     Indication: Product used for unknown indication
     Dosage: VIT D3, 30000 UNITS BY MOUTH DAILY?3 10,000 UNITS SOFTGELS ONCE DAILY
     Route: 050
  8. CHOLECALCIFEROL [Concomitant]
     Active Substance: CHOLECALCIFEROL
     Dosage: EXCEDRIN BACK + BODY ORAL
     Route: 050
  9. CHOLECALCIFEROL [Concomitant]
     Active Substance: CHOLECALCIFEROL
     Dosage: EXCEDRIN BACK + BODY ORAL
     Route: 050
  10. FERROUS SULFATE [Concomitant]
     Active Substance: FERROUS SULFATE
     Indication: Product used for unknown indication
     Dosage: IRON ORAL, BY MOUTH
     Route: 050
  11. FERROUS SULFATE [Concomitant]
     Active Substance: FERROUS SULFATE
     Dosage: EXCEDRIN BACK + BODY ORAL
     Route: 050
  12. FERROUS SULFATE [Concomitant]
     Active Substance: FERROUS SULFATE
     Dosage: EXCEDRIN BACK + BODY ORAL
     Route: 050
  13. ZOLOFT [Concomitant]
     Active Substance: SERTRALINE HYDROCHLORIDE
     Indication: Product used for unknown indication
     Dosage: BY MOUTH DAILY, DISP-90 TABLETS, RFL-3
     Route: 050
  14. ASPIRIN/ACETAMINOPHEN [Concomitant]
     Indication: Product used for unknown indication
     Dosage: EXCEDRIN BACK AND BODY ORAL
     Route: 050

REACTIONS (2)
  - Caesarean section [Recovered/Resolved]
  - Maternal exposure during pregnancy [Recovered/Resolved]

NARRATIVE: CASE EVENT DATE: 20180101
